FAERS Safety Report 15878276 (Version 1)
Quarter: 2019Q1

REPORT INFORMATION
  Report Type: Spontaneous
  Country: US (occurrence: US)
  Receive Date: 20190103
  Receipt Date: 20190103
  Transmission Date: 20190417
  Serious: Yes (Hospitalization, Other)
  Sender: FDA-Public Use
  Company Number: None

PATIENT
  Age: 64 Year
  Sex: Female
  Weight: 96 kg

DRUGS (1)
  1. IODIXANOL 270MG/ML [Suspect]
     Active Substance: IODIXANOL
     Indication: BASILAR ARTERY ANEURYSM
     Route: 013
     Dates: start: 20181116, end: 20181116

REACTIONS (13)
  - Cerebellar infarction [None]
  - Confusional state [None]
  - Disorientation [None]
  - Brain oedema [None]
  - Ischaemia [None]
  - Dysarthria [None]
  - Lethargy [None]
  - Subarachnoid haemorrhage [None]
  - Contrast encephalopathy [None]
  - Nausea [None]
  - Upper motor neurone lesion [None]
  - Cerebral haemorrhage [None]
  - Vomiting [None]

NARRATIVE: CASE EVENT DATE: 20181116
